FAERS Safety Report 15204585 (Version 1)
Quarter: 2018Q3

REPORT INFORMATION
  Report Type: Spontaneous
  Country: US (occurrence: US)
  Receive Date: 20180628
  Receipt Date: 20180628
  Transmission Date: 20181010
  Serious: No
  Sender: FDA-Public Use
  Company Number: None

PATIENT
  Age: 46 Year
  Sex: Female
  Weight: 99 kg

DRUGS (2)
  1. CAPECITABINE. [Suspect]
     Active Substance: CAPECITABINE
     Indication: BREAST CANCER FEMALE
     Route: 048
     Dates: start: 20180521
  2. CAPECITABINE 500 MG TABLETS [Concomitant]
     Active Substance: CAPECITABINE
     Dates: start: 20180521

REACTIONS (4)
  - Swelling face [None]
  - Dry mouth [None]
  - Erythema [None]
  - Abdominal pain upper [None]
